FAERS Safety Report 15371294 (Version 2)
Quarter: 2018Q3

REPORT INFORMATION
  Report Type: Spontaneous
  Country: IT (occurrence: IT)
  Receive Date: 20180911
  Receipt Date: 20180914
  Transmission Date: 20181010
  Serious: Yes (Life-Threatening)
  Sender: FDA-Public Use
  Company Number: IT-ASTRAZENECA-2018SF13402

PATIENT
  Age: 79 Year
  Sex: Male

DRUGS (1)
  1. QUETIAPINE. [Suspect]
     Active Substance: QUETIAPINE
     Indication: DELUSIONAL DISORDER, PERSECUTORY TYPE
     Dosage: TEVA NON?AZ DRUG
     Route: 048
     Dates: start: 20171201, end: 20180101

REACTIONS (2)
  - Skin exfoliation [Recovering/Resolving]
  - Laryngeal oedema [Recovering/Resolving]

NARRATIVE: CASE EVENT DATE: 20171201
